FAERS Safety Report 23780430 (Version 3)
Quarter: 2024Q2

REPORT INFORMATION
  Report Type: Spontaneous
  Country: US (occurrence: US)
  Receive Date: 20240424
  Receipt Date: 20240503
  Transmission Date: 20240716
  Serious: No
  Sender: FDA-Public Use
  Company Number: US-AMGEN-USASP2024080949

PATIENT
  Sex: Female

DRUGS (1)
  1. BLINCYTO [Suspect]
     Active Substance: BLINATUMOMAB
     Indication: Acute myeloid leukaemia
     Dosage: UNK
     Route: 065

REACTIONS (2)
  - Vascular access malfunction [Unknown]
  - Off label use [Unknown]
